FAERS Safety Report 24669905 (Version 3)
Quarter: 2025Q3

REPORT INFORMATION
  Report Type: Spontaneous
  Country: US (occurrence: US)
  Receive Date: 20241127
  Receipt Date: 20250816
  Transmission Date: 20251021
  Serious: No
  Sender: ALEXION PHARMACEUTICALS
  Company Number: US-AstraZeneca-CH-00755099A

PATIENT
  Age: 65 Year
  Sex: Female

DRUGS (3)
  1. TRUQAP [Suspect]
     Active Substance: CAPIVASERTIB
     Dosage: 400 MILLIGRAM, BID
     Route: 065
     Dates: start: 202404
  2. PANTOPRAZOLE [Concomitant]
     Active Substance: PANTOPRAZOLE
     Indication: Gastrooesophageal reflux disease
     Route: 065
  3. DILTIAZEM [Concomitant]
     Active Substance: DILTIAZEM
     Indication: Anal fissure
     Route: 065

REACTIONS (10)
  - Diarrhoea [Unknown]
  - Anorectal discomfort [Unknown]
  - Drug level decreased [Unknown]
  - Haemorrhoids [Unknown]
  - Anal fissure [Unknown]
  - Proctalgia [Unknown]
  - Analgesic therapy [Unknown]
  - Gastrooesophageal reflux disease [Unknown]
  - Tumour marker decreased [Unknown]
  - Blood test [Unknown]

NARRATIVE: CASE EVENT DATE: 20241001
